FAERS Safety Report 6370695-4 (Version None)
Quarter: 2009Q3

REPORT INFORMATION
  Report Type: 
  Country: None (occurrence: None)
  Receive Date: 20090923
  Receipt Date: 20080121
  Transmission Date: 20100115
  Serious: Yes (Other)
  Sender: FDA-Public Use
  Company Number: US-ASTRAZENECA-2006UW25461

PATIENT
  Age: 34 Year
  Sex: Female
  Weight: 112.9 kg

DRUGS (19)
  1. SEROQUEL [Suspect]
     Indication: ANXIETY
     Route: 048
     Dates: start: 20050501, end: 20060601
  2. SEROQUEL [Suspect]
     Indication: DEPRESSION
     Route: 048
     Dates: start: 20050501, end: 20060601
  3. SEROQUEL [Suspect]
     Indication: BIPOLAR DISORDER
     Route: 048
     Dates: start: 20050501, end: 20060601
  4. SEROQUEL [Suspect]
     Route: 048
     Dates: start: 20050519
  5. SEROQUEL [Suspect]
     Route: 048
     Dates: start: 20050519
  6. SEROQUEL [Suspect]
     Route: 048
     Dates: start: 20050519
  7. PROZAC [Concomitant]
     Dates: start: 20060120
  8. DEPAKOTE [Concomitant]
     Dates: start: 20060110
  9. AMITRIPTYLINE [Concomitant]
     Dates: start: 20060726
  10. CLONAZEPAM [Concomitant]
     Dosage: 1MG-2MG
     Dates: start: 20060614
  11. TEMAZEPAM [Concomitant]
     Dates: start: 20060110
  12. LORAZEPAM [Concomitant]
     Dosage: 1MG-2MG
     Dates: start: 20050609
  13. FLUOXETINE [Concomitant]
     Dates: start: 20060110
  14. ALPRAZOLAM [Concomitant]
     Dates: start: 20050519
  15. LEXAPRO [Concomitant]
     Dosage: 10MG-20MG
     Dates: start: 20050510
  16. GEODON [Concomitant]
     Dates: start: 20050629
  17. CYCLOBENZAPRINE [Concomitant]
     Dates: start: 20050510
  18. SYNTHROID [Concomitant]
     Dates: start: 20050513
  19. FLURAZEPAM [Concomitant]
     Dates: start: 20050511

REACTIONS (3)
  - DIABETES MELLITUS [None]
  - DIABETIC COMA [None]
  - PANCREATITIS [None]
